FAERS Safety Report 10955101 (Version 1)
Quarter: 2015Q1

REPORT INFORMATION
  Report Type: Spontaneous
  Country: US (occurrence: US)
  Receive Date: 20150326
  Receipt Date: 20150326
  Transmission Date: 20150721
  Serious: No
  Sender: FDA-Public Use
  Company Number: US-SUN PHARMACEUTICAL INDUSTRIES LTD-2015SUN00004

PATIENT

DRUGS (13)
  1. QUERCETIN [Concomitant]
     Active Substance: QUERCETIN
     Dosage: UNK
     Dates: start: 201411
  2. CALCIUM [Concomitant]
     Active Substance: CALCIUM
  3. QUERCETIN [Concomitant]
     Active Substance: QUERCETIN
     Dosage: 500 MG, DAILY
     Dates: start: 20141202
  4. FISH OIL [Concomitant]
     Active Substance: FISH OIL
  5. RANITIDINE HYDROCHLORIDE SYRUP USP, 15 MG/ML [Suspect]
     Active Substance: RANITIDINE HYDROCHLORIDE
     Indication: MAST CELL ACTIVATION SYNDROME
     Dosage: 10 ML, BID BEFORE MEALS
     Route: 048
     Dates: start: 201407
  6. ASPIRIN. [Concomitant]
     Active Substance: ASPIRIN
     Dosage: UNK
  7. MANGNESIUM [Concomitant]
  8. MULTIVITAMINS [Concomitant]
     Active Substance: VITAMINS
  9. ENZYME SUPPLEMENT [Concomitant]
  10. CROMOLYN SODIUM. [Concomitant]
     Active Substance: CROMOLYN SODIUM
  11. ULTRA FLORA [Concomitant]
  12. THYROID MEDICATION NOS [Concomitant]
  13. DOXYCYCLINE. [Concomitant]
     Active Substance: DOXYCYCLINE
     Dosage: UNK

REACTIONS (6)
  - Drug ineffective [Unknown]
  - Pruritus [Unknown]
  - Flatulence [Unknown]
  - Abdominal discomfort [Unknown]
  - Constipation [Unknown]
  - Diarrhoea [Unknown]

NARRATIVE: CASE EVENT DATE: 201412
